FAERS Safety Report 9405746 (Version 1)
Quarter: 2013Q3

REPORT INFORMATION
  Report Type: Spontaneous
  Country: US (occurrence: US)
  Receive Date: 20130717
  Receipt Date: 20130717
  Transmission Date: 20140515
  Serious: No
  Sender: FDA-Public Use
  Company Number: US-B.I. PHARMACEUTICALS,INC./RIDGEFIELD-2013-BI-20170BP

PATIENT
  Sex: Female

DRUGS (1)
  1. MICARDIS HCT TABLETS [Suspect]
     Indication: PRODUCT USED FOR UNKNOWN INDICATION
     Dosage: STRENGTH: 40 MG / 12.5 MG; DAILY DOSE: 40 MG / 12.5 MG
     Route: 048
     Dates: start: 201304, end: 201307

REACTIONS (2)
  - Myalgia [Unknown]
  - Local swelling [Unknown]
